FAERS Safety Report 8719747 (Version 2)
Quarter: 2012Q4

REPORT INFORMATION
  Report Type: Spontaneous
  Country: ES (occurrence: None)
  Receive Date: 20120726
  Receipt Date: 20120827
  Transmission Date: 20130627
  Serious: Yes (Hospitalization, Other)
  Sender: FDA-Public Use
  Company Number: 2012AP002160

PATIENT
  Age: 34 Year
  Sex: Female

DRUGS (5)
  1. FLUCONAZOLE [Suspect]
     Indication: ANTIFUNGAL PROPHYLAXIS
     Dosage: 100 MG; QD
  2. TACROLIMUS [Suspect]
     Indication: IMMUNOSUPPRESSANT DRUG THERAPY
  3. MYCOPHENOLATE MOFETIL [Suspect]
     Indication: IMMUNOSUPPRESSANT DRUG THERAPY
  4. IMIPENEM [Suspect]
     Indication: WOUND INFECTION STAPHYLOCOCCAL
  5. VANCOMYCIN [Suspect]
     Indication: WOUND INFECTION STAPHYLOCOCCAL

REACTIONS (7)
  - Systemic candida [None]
  - Septic shock [None]
  - General physical health deterioration [None]
  - Wound infection staphylococcal [None]
  - Abdominal pain [None]
  - Food intolerance [None]
  - Device related infection [None]
